FAERS Safety Report 22921447 (Version 2)
Quarter: 2024Q3

REPORT INFORMATION
  Report Type: Spontaneous
  Country: US (occurrence: None)
  Receive Date: 20230908
  Receipt Date: 20240906
  Transmission Date: 20241017
  Serious: No
  Sender: DOMPE FARMACEUTICI
  Company Number: US-FARMAPROD-202306-1805

PATIENT
  Sex: Female

DRUGS (18)
  1. OXERVATE [Suspect]
     Active Substance: CENEGERMIN-BKBJ
     Indication: Neurotrophic keratopathy
     Route: 047
     Dates: start: 20230615
  2. OXERVATE [Suspect]
     Active Substance: CENEGERMIN-BKBJ
  3. HYDROCORTISONE [Concomitant]
     Active Substance: HYDROCORTISONE\HYDROCORTISONE ACETATE
  4. SERTRALINE HYDROCHLORIDE [Concomitant]
     Active Substance: SERTRALINE HYDROCHLORIDE
  5. MULTIVITAMIN-IRON-FLUORIDE [Concomitant]
  6. FAMOTIDINE [Concomitant]
     Active Substance: FAMOTIDINE
  7. CLOBETASOL PROPIONATE [Concomitant]
     Active Substance: CLOBETASOL PROPIONATE
  8. TRIAMCINOLONE ACETONIDE [Concomitant]
     Active Substance: TRIAMCINOLONE ACETONIDE
  9. DUPIXENT [Concomitant]
     Active Substance: DUPILUMAB
     Dosage: 300 MG / 2 ML SYRINGE
  10. TOPICORT [Concomitant]
     Active Substance: DESOXIMETASONE
  11. OPZELURA [Concomitant]
     Active Substance: RUXOLITINIB PHOSPHATE
  12. ESTRADIOL [Concomitant]
     Active Substance: ESTRADIOL
  13. PRALUENT [Concomitant]
     Active Substance: ALIROCUMAB
     Dosage: 75 MG/ML PEN INJECTOR
  14. TAZORAC [Concomitant]
     Active Substance: TAZAROTENE
  15. VITAMIN D3 [Concomitant]
     Active Substance: CHOLECALCIFEROL
  16. GABAPENTIN [Concomitant]
     Active Substance: GABAPENTIN
  17. XARELTO [Concomitant]
     Active Substance: RIVAROXABAN
  18. AMLODIPINE BESYLATE [Concomitant]
     Active Substance: AMLODIPINE BESYLATE

REACTIONS (2)
  - Eye pain [Unknown]
  - Device issue [Unknown]
